FAERS Safety Report 18389784 (Version 1)
Quarter: 2020Q4

REPORT INFORMATION
  Report Type: Spontaneous
  Country: NL (occurrence: NL)
  Receive Date: 20201016
  Receipt Date: 20201016
  Transmission Date: 20210114
  Serious: Yes (Life-Threatening)
  Sender: FDA-Public Use
  Company Number: NL-TEVA-2020-NL-1838138

PATIENT
  Age: 56 Year
  Sex: Female
  Weight: 70 kg

DRUGS (5)
  1. OXYCODON TABLET   5MG / BRAND NAME NOT SPECIFIED [Concomitant]
     Dosage: THERAPY START DATE AND END DATE: ASKED BUT UNKNOWN
  2. ESOMEPRAZOL TABLET MSR 20MG / BRAND NAME NOT SPECIFIED [Concomitant]
     Dosage: 1 DOSAGE FORMS DAILY; THERAPY START DATE AND END DATE: ASKED BUT UNKNOWN
  3. COLCHICINE TABLET 0,5MG / BRAND NAME NOT SPECIFIED [Suspect]
     Active Substance: COLCHICINE
     Indication: GOUT
     Dosage: 1.5 MILLIGRAM DAILY;
     Dates: start: 20200916, end: 20200918
  4. FOLIUMZUUR TABLET 0,5MG / BRAND NAME NOT SPECIFIED [Concomitant]
     Dosage: 0.5 MG (MILLIGRAM), THERAPY START DATE AND END DATE: ASKED BUT UNKNOWN
  5. CALCIUMCARB/COLECALC KAUWTB 1,25G/800IE (500MG CA) / TACAL D3 KAUWTABL [Concomitant]
     Dosage: 1.25 G (GRAM) / 800 UNITS, THERAPY START DATE AND END DATE: ASKED BUT UNKNOWN,(1 DF)

REACTIONS (4)
  - Vomiting [Recovered/Resolved]
  - Paraesthesia [Recovered/Resolved]
  - Diarrhoea [Recovered/Resolved]
  - Nausea [Recovered/Resolved]

NARRATIVE: CASE EVENT DATE: 20200918
